FAERS Safety Report 7674229-3 (Version None)
Quarter: 2011Q3

REPORT INFORMATION
  Report Type: 
  Country: None (occurrence: None)
  Receive Date: 20110810
  Receipt Date: 20110729
  Transmission Date: 20111222
  Serious: Yes (Hospitalization, Other)
  Sender: FDA-Public Use
  Company Number: US-ELI_LILLY_AND_COMPANY-US201104001177

PATIENT
  Age: 59 Year
  Sex: Male

DRUGS (8)
  1. HUMULIN N [Suspect]
     Indication: TYPE 1 DIABETES MELLITUS
     Dosage: 30 U, EACH MORNING
     Dates: start: 19710101
  2. NOVOLIN N [Concomitant]
     Indication: TYPE 1 DIABETES MELLITUS
  3. NOVOLIN R [Concomitant]
     Indication: TYPE 1 DIABETES MELLITUS
  4. ILETIN [Suspect]
  5. HUMULIN R [Suspect]
     Indication: TYPE 1 DIABETES MELLITUS
     Dosage: 6 U, EACH MORNING
     Dates: start: 19710101
  6. HUMULIN R [Suspect]
     Dosage: 8 U, OTHER
     Dates: start: 19710101
  7. ILETIN [Suspect]
     Indication: TYPE 1 DIABETES MELLITUS
  8. HUMULIN N [Suspect]
     Dosage: 8 U, OTHER
     Dates: start: 19710101

REACTIONS (15)
  - SOMNOLENCE [None]
  - BLOOD GLUCOSE INCREASED [None]
  - COMA [None]
  - FEELING ABNORMAL [None]
  - INCORRECT DOSE ADMINISTERED [None]
  - ROAD TRAFFIC ACCIDENT [None]
  - INFLUENZA [None]
  - DISORIENTATION [None]
  - URINARY INCONTINENCE [None]
  - CONVULSION [None]
  - BLOOD GLUCOSE DECREASED [None]
  - INCOHERENT [None]
  - FAECAL INCONTINENCE [None]
  - MUMPS [None]
  - GLYCOSYLATED HAEMOGLOBIN INCREASED [None]
